FAERS Safety Report 18715326 (Version 2)
Quarter: 2021Q1

REPORT INFORMATION
  Report Type: Spontaneous
  Country: US (occurrence: US)
  Receive Date: 20210108
  Receipt Date: 20210114
  Transmission Date: 20210419
  Serious: No
  Sender: FDA-Public Use
  Company Number: US-ASTRAZENECA-2020SF72208

PATIENT
  Sex: Female
  Weight: 108.9 kg

DRUGS (2)
  1. BYDUREON BCISE [Suspect]
     Active Substance: EXENATIDE
     Indication: TYPE 2 DIABETES MELLITUS
     Route: 065
  2. LANTUS SOLOSTAR [Concomitant]
     Active Substance: INSULIN GLARGINE

REACTIONS (9)
  - Incorrect dose administered by device [Unknown]
  - Body height decreased [Unknown]
  - Device defective [Unknown]
  - Intentional device misuse [Unknown]
  - Injection site bruising [Unknown]
  - Injection site mass [Unknown]
  - Device leakage [Unknown]
  - Device issue [Unknown]
  - Incorrect dose administered [Unknown]
